FAERS Safety Report 14055122 (Version 1)
Quarter: 2017Q4

REPORT INFORMATION
  Report Type: Report from Study
  Country: ES (occurrence: ES)
  Receive Date: 20171006
  Receipt Date: 20171006
  Transmission Date: 20180321
  Serious: Yes (Death, Other)
  Sender: FDA-Public Use
  Company Number: ES-BRISTOL-MYERS SQUIBB COMPANY-BMS-2017-089231

PATIENT
  Age: 46 Year
  Sex: Male

DRUGS (1)
  1. NIVOLUMAB [Suspect]
     Active Substance: NIVOLUMAB
     Indication: LUNG ADENOCARCINOMA
     Dosage: 3 MG/KG, Q2WK
     Route: 065
     Dates: start: 201704

REACTIONS (7)
  - Malignant neoplasm progression [Unknown]
  - Pneumonitis [Unknown]
  - Constipation [Unknown]
  - Lymphadenopathy [Unknown]
  - General physical health deterioration [Unknown]
  - Death [Fatal]
  - Abdominal pain [Unknown]
